FAERS Safety Report 20429589 (Version 1)
Quarter: 2022Q1

REPORT INFORMATION
  Report Type: Report from Study
  Country: FR (occurrence: FR)
  Receive Date: 20220204
  Receipt Date: 20220204
  Transmission Date: 20220423
  Serious: Yes (Hospitalization)
  Sender: FDA-Public Use
  Company Number: FR-SERVIER-S19006365

PATIENT

DRUGS (8)
  1. ONCASPAR [Suspect]
     Active Substance: PEGASPARGASE
     Indication: Acute lymphocytic leukaemia
     Dosage: 3775 IU, ON DAYS 12 AND 26
     Route: 042
     Dates: start: 20190315, end: 20190329
  2. PREDNISONE [Suspect]
     Active Substance: PREDNISONE
     Indication: Acute lymphocytic leukaemia
     Dosage: 90.6 MG, ON DAYS 1-7 AND 8-28
     Route: 048
     Dates: start: 20190304
  3. METHOTREXATE [Suspect]
     Active Substance: METHOTREXATE
     Indication: Acute lymphocytic leukaemia
     Dosage: 15 MG, ON DAYS 1, 4, 9, 13 AND 24
     Route: 037
     Dates: start: 20190304, end: 20190327
  4. CYTARABINE [Suspect]
     Active Substance: CYTARABINE
     Indication: Acute lymphocytic leukaemia
     Dosage: 30 MG, ON DAYS 1, 4, 9, 13 AND 24
     Route: 037
     Dates: start: 20190307, end: 20190327
  5. HYDROCORTISONE [Suspect]
     Active Substance: HYDROCORTISONE
     Indication: Acute lymphocytic leukaemia
     Dosage: 15 MG, UNKNOWN
     Route: 037
     Dates: start: 20190307, end: 20190327
  6. VINCRISTINE SULFATE [Suspect]
     Active Substance: VINCRISTINE SULFATE
     Indication: Acute lymphocytic leukaemia
     Dosage: 2 MG, ON DAYS 8, 15, 22 AND 29
     Route: 042
     Dates: start: 20190311, end: 20190401
  7. DAUNORUBICIN HYDROCHLORIDE [Suspect]
     Active Substance: DAUNORUBICIN HYDROCHLORIDE
     Indication: Acute lymphocytic leukaemia
     Dosage: 45 MG, ON DAYS 8, 15, 22 AND 29
     Route: 042
     Dates: start: 20190311, end: 20190401
  8. VALACYCLOVIR HYDROCHLORIDE [Concomitant]
     Active Substance: VALACYCLOVIR HYDROCHLORIDE
     Indication: Anti-infective therapy
     Dosage: 500 MG, QD
     Route: 048
     Dates: start: 20190304

REACTIONS (2)
  - Nephritis [Not Recovered/Not Resolved]
  - Abscess fungal [Not Recovered/Not Resolved]

NARRATIVE: CASE EVENT DATE: 20190407
